APPROVED DRUG PRODUCT: CLOPIDOGREL BISULFATE
Active Ingredient: CLOPIDOGREL BISULFATE
Strength: EQ 75MG BASE
Dosage Form/Route: TABLET;ORAL
Application: A090844 | Product #001 | TE Code: AB
Applicant: TORRENT PHARMACEUTICALS LTD
Approved: May 17, 2012 | RLD: No | RS: No | Type: RX